FAERS Safety Report 23232336 (Version 2)
Quarter: 2023Q4

REPORT INFORMATION
  Report Type: Spontaneous
  Country: US (occurrence: US)
  Receive Date: 20231127
  Receipt Date: 20231130
  Transmission Date: 20240110
  Serious: Yes (Other)
  Sender: FDA-Public Use
  Company Number: US-CSLP-01010521251-V13423786-2

PATIENT
  Age: 18 Year
  Sex: Female

DRUGS (1)
  1. ANTICOAGULANT SODIUM CITRATE [Suspect]
     Active Substance: SODIUM CITRATE
     Indication: Anticoagulant therapy
     Route: 050
     Dates: start: 20231118, end: 20231118

REACTIONS (20)
  - Loss of consciousness [Recovered/Resolved]
  - Hyperhidrosis [Recovered/Resolved]
  - Hypoaesthesia [Recovered/Resolved]
  - Cold sweat [Recovered/Resolved]
  - Nausea [Recovered/Resolved]
  - Anxiety [Recovered/Resolved]
  - Thirst [Recovered/Resolved]
  - Peripheral coldness [Recovered/Resolved]
  - Muscle spasms [Recovered/Resolved]
  - Dizziness [Recovered/Resolved]
  - Tremor [Recovered/Resolved]
  - Restlessness [Recovered/Resolved]
  - Tachypnoea [Recovered/Resolved]
  - Hypoaesthesia oral [Recovered/Resolved]
  - Skin discolouration [Recovered/Resolved]
  - Pain in extremity [Recovered/Resolved]
  - Cyanosis [Recovered/Resolved]
  - Paraesthesia [Recovered/Resolved]
  - Paraesthesia oral [Recovered/Resolved]
  - Dysarthria [Recovered/Resolved]

NARRATIVE: CASE EVENT DATE: 20231118
